FAERS Safety Report 6104830-X (Version None)
Quarter: 2009Q1

REPORT INFORMATION
  Report Type: 
  Country: None (occurrence: None)
  Receive Date: 20090306
  Receipt Date: 20090227
  Transmission Date: 20090719
  Serious: Yes (Disabling, Other)
  Sender: FDA-Public Use
  Company Number: US-JNJFOC-20080702675

PATIENT
  Sex: Female
  Weight: 57.15 kg

DRUGS (2)
  1. ORTHO EVRA [Suspect]
     Route: 062
  2. ORTHO EVRA [Suspect]
     Indication: CONTRACEPTION
     Route: 062

REACTIONS (3)
  - CEREBROVASCULAR ACCIDENT [None]
  - HEADACHE [None]
  - HEMIANOPIA HOMONYMOUS [None]
